FAERS Safety Report 20458056 (Version 1)
Quarter: 2022Q1

REPORT INFORMATION
  Report Type: Spontaneous
  Country: US (occurrence: US)
  Receive Date: 20220211
  Receipt Date: 20220211
  Transmission Date: 20220423
  Serious: No
  Sender: FDA-Public Use
  Company Number: US-BEIGENE USA INC-BGN-2022-001160

PATIENT

DRUGS (2)
  1. BRUKINSA [Suspect]
     Active Substance: ZANUBRUTINIB
     Indication: Mantle cell lymphoma
     Dosage: UNK
     Route: 048
     Dates: start: 202112
  2. ELIQUIS [Suspect]
     Active Substance: APIXABAN
     Indication: Product used for unknown indication

REACTIONS (1)
  - Contusion [Recovered/Resolved]
